FAERS Safety Report 8066941-1 (Version None)
Quarter: 2012Q1

REPORT INFORMATION
  Report Type: 
  Country: None (occurrence: None)
  Receive Date: 20120124
  Receipt Date: 20120117
  Transmission Date: 20120608
  Serious: Yes (Hospitalization)
  Sender: FDA-Public Use
  Company Number: US-BAYER-2011-062909

PATIENT
  Age: 35 Year
  Sex: Female
  Weight: 63.039 kg

DRUGS (5)
  1. TRAMADOL HCL [Concomitant]
  2. YAZ [Suspect]
     Indication: CONTRACEPTION
     Dosage: UNK
     Route: 048
     Dates: start: 20080501, end: 20100301
  3. YAZ [Suspect]
     Indication: PREMENSTRUAL SYNDROME
  4. ADDERALL 5 [Concomitant]
     Indication: ATTENTION DEFICIT/HYPERACTIVITY DISORDER
     Dosage: UNK
     Route: 048
     Dates: start: 20060101
  5. YAZ [Suspect]
     Indication: OVARIAN CYST

REACTIONS (2)
  - CHOLECYSTITIS [None]
  - INJURY [None]
